FAERS Safety Report 15832274 (Version 3)
Quarter: 2019Q2

REPORT INFORMATION
  Report Type: Report from Study
  Country: None (occurrence: BR)
  Receive Date: 20190116
  Receipt Date: 20190411
  Transmission Date: 20190711
  Serious: Yes (Other)
  Sender: FDA-Public Use
  Company Number: BR-ABBVIE-19K-020-2624829-00

PATIENT
  Age: 48 Year
  Sex: Male
  Weight: 99 kg

DRUGS (3)
  1. ALEKTOS [Concomitant]
     Active Substance: BILASTINE
     Indication: EYE SWELLING
  2. ALEKTOS [Concomitant]
     Active Substance: BILASTINE
     Indication: MOUTH SWELLING
  3. HUMIRA [Suspect]
     Active Substance: ADALIMUMAB
     Indication: ANKYLOSING SPONDYLITIS
     Route: 058
     Dates: start: 20180814, end: 20181024

REACTIONS (2)
  - Incarcerated hernia [Unknown]
  - Prostatic disorder [Not Recovered/Not Resolved]

NARRATIVE: CASE EVENT DATE: 201812
